FAERS Safety Report 8847592 (Version 1)
Quarter: 2012Q4

REPORT INFORMATION
  Report Type: 
  Country: JP (occurrence: JP)
  Receive Date: 20121018
  Receipt Date: 20121018
  Transmission Date: 20130627
  Serious: Yes (Other)
  Sender: FDA-Public Use
  Company Number: JP-B.I. PHARMACEUTICALS,INC./RIDGEFIELD-2012-BP-05636NB

PATIENT
  Age: 66 Year
  Sex: Male
  Weight: 70.4 kg

DRUGS (7)
  1. TRAZENTA [Suspect]
     Indication: DIABETES MELLITUS
     Dosage: 2.5 RT
     Route: 048
     Dates: start: 201202, end: 20120314
  2. TANATRIL [Suspect]
     Dosage: 5 mg
     Route: 048
  3. COMELIAN [Concomitant]
     Dosage: 300 mg
     Route: 048
  4. KREMEZIN [Concomitant]
     Dosage: 6 g
     Route: 048
  5. ALLOPURINOL [Concomitant]
     Dosage: 100 mg
     Route: 048
  6. FLUTICASONE [Concomitant]
     Indication: ASTHMA
     Route: 055
  7. SALMETEROL XINAFOATE [Concomitant]
     Indication: ASTHMA
     Route: 055

REACTIONS (8)
  - Renal impairment [Recovered/Resolved]
  - Nausea [Recovered/Resolved]
  - Glycosylated haemoglobin increased [Unknown]
  - Blood creatinine increased [Unknown]
  - Diabetes mellitus [Unknown]
  - Blood glucose increased [Recovered/Resolved]
  - Blood potassium increased [Unknown]
  - Diabetes mellitus inadequate control [Unknown]
